FAERS Safety Report 11307832 (Version 1)
Quarter: 2015Q3

REPORT INFORMATION
  Report Type: Spontaneous
  Country: PL (occurrence: PL)
  Receive Date: 20150724
  Receipt Date: 20150724
  Transmission Date: 20151125
  Serious: Yes (Life-Threatening)
  Sender: FDA-Public Use
  Company Number: PL-HOSPIRA-2947945

PATIENT
  Age: 24 Year
  Sex: Male
  Weight: 43 kg

DRUGS (7)
  1. MEROPENEM. [Suspect]
     Active Substance: MEROPENEM
     Indication: CYSTIC FIBROSIS
     Dosage: 1 G X 4
     Route: 041
     Dates: start: 20140331, end: 20140403
  2. KREON                              /00014701/ [Concomitant]
     Active Substance: PANCRELIPASE
     Indication: CYSTIC FIBROSIS
     Dosage: 10-12 CAPSULES
     Route: 048
     Dates: start: 20140331
  3. ACC                                /00082801/ [Concomitant]
     Indication: CYSTIC FIBROSIS
     Route: 048
     Dates: start: 20140331
  4. CONTROLOC                          /01263201/ [Concomitant]
     Indication: CYSTIC FIBROSIS
     Route: 048
     Dates: start: 20140302
  5. TRILAC                             /00031902/ [Concomitant]
     Indication: CYSTIC FIBROSIS
     Route: 048
     Dates: start: 20140331
  6. URSOFALK [Concomitant]
     Active Substance: URSODIOL
     Indication: CYSTIC FIBROSIS
     Route: 048
     Dates: start: 20140331
  7. COLISTIN [Concomitant]
     Active Substance: COLISTIN
     Indication: CYSTIC FIBROSIS
     Dosage: 5000000 IU
     Route: 042
     Dates: start: 20140331

REACTIONS (4)
  - Dyspnoea [Recovered/Resolved]
  - Cyanosis [Recovered/Resolved]
  - Hypotonia [Recovered/Resolved]
  - Loss of consciousness [Recovered/Resolved]

NARRATIVE: CASE EVENT DATE: 20140403
